FAERS Safety Report 7263708-9 (Version None)
Quarter: 2011Q1

REPORT INFORMATION
  Report Type: 
  Country: None (occurrence: None)
  Receive Date: 20110130
  Receipt Date: 20101202
  Transmission Date: 20110831
  Serious: No
  Sender: FDA-Public Use
  Company Number: US-ABBOTT-10P-163-0689830-00

PATIENT
  Sex: Female
  Weight: 131.66 kg

DRUGS (6)
  1. PREVACID [Concomitant]
     Indication: HIATUS HERNIA
  2. MOTRIN [Concomitant]
     Indication: ARTHRITIS
  3. AMBIEN [Concomitant]
     Indication: INSOMNIA
  4. METOPROLOL [Concomitant]
     Indication: HYPERTENSION
  5. METHOTREXATE [Concomitant]
     Indication: RHEUMATOID ARTHRITIS
     Dates: start: 20100901
  6. HUMIRA [Suspect]
     Indication: RHEUMATOID ARTHRITIS
     Dates: start: 20101001

REACTIONS (4)
  - AMNESIA [None]
  - PAIN IN EXTREMITY [None]
  - OEDEMA PERIPHERAL [None]
  - TREMOR [None]
